FAERS Safety Report 10052263 (Version 1)
Quarter: 2014Q2

REPORT INFORMATION
  Report Type: Other
  Country: DE (occurrence: DE)
  Receive Date: 20140402
  Receipt Date: 20140402
  Transmission Date: 20141212
  Serious: Yes (Hospitalization, Congenital Anomaly, Other)
  Sender: FDA-Public Use
  Company Number: DE-LUPIN PHARMACEUTICALS INC.-E2B_00001867

PATIENT
  Age: 1 Day
  Sex: Male
  Weight: 4.26 kg

DRUGS (5)
  1. SERTRALINE [Suspect]
     Indication: ANXIETY DISORDER
     Route: 064
     Dates: start: 20120120, end: 20121015
  2. ZOPICLONE [Suspect]
     Indication: SLEEP DISORDER
     Route: 064
     Dates: start: 20120120
  3. OPIPRAMOL [Suspect]
     Indication: DEPRESSION
     Route: 064
     Dates: start: 20120120
  4. CENTRUM MATERNA [Concomitant]
     Indication: PROPHYLAXIS OF NEURAL TUBE DEFECT
     Route: 064
     Dates: start: 20120302, end: 20121015
  5. (NASENTROPFEN K [Concomitant]
     Indication: PRODUCT USED FOR UNKNOWN INDICATION
     Route: 064
     Dates: start: 20120120, end: 20121015

REACTIONS (5)
  - Neonatal respiratory distress syndrome [Recovered/Resolved]
  - Kidney duplex [Not Recovered/Not Resolved]
  - Foetal exposure during pregnancy [Unknown]
  - Foetal macrosomia [Unknown]
  - Urinary tract infection [Unknown]
